FAERS Safety Report 7489874-8 (Version None)
Quarter: 2011Q2

REPORT INFORMATION
  Report Type: 
  Country: None (occurrence: None)
  Receive Date: 20110511
  Receipt Date: 20110427
  Transmission Date: 20111010
  Serious: Yes (Hospitalization)
  Sender: FDA-Public Use
  Company Number: CLO-11-03

PATIENT
  Age: 52 Year
  Sex: Female

DRUGS (5)
  1. METOPROLOL TARTRATE [Concomitant]
  2. LOPINAVIR/RITONAVIR [Concomitant]
  3. HYDRALAZINE HCL [Concomitant]
  4. CLONIDINE [Suspect]
     Indication: HYPERTENSION
     Dosage: 0.2MG/3X/DAY
  5. DILTIAZEM CD [Concomitant]

REACTIONS (6)
  - ELECTROCARDIOGRAM QRS COMPLEX SHORTENED [None]
  - BLOOD PRESSURE DECREASED [None]
  - CONFUSIONAL STATE [None]
  - DEPRESSED LEVEL OF CONSCIOUSNESS [None]
  - ELECTROCARDIOGRAM PR SHORTENED [None]
  - ELECTROCARDIOGRAM P WAVE ABNORMAL [None]
